FAERS Safety Report 24666072 (Version 1)
Quarter: 2024Q4

REPORT INFORMATION
  Report Type: Spontaneous
  Country: US (occurrence: US)
  Receive Date: 20241126
  Receipt Date: 20241126
  Transmission Date: 20250115
  Serious: No
  Sender: Harrow Health
  Company Number: US-IMP-2024001018

PATIENT
  Sex: Female

DRUGS (2)
  1. VEVYE [Suspect]
     Active Substance: CYCLOSPORINE
     Indication: Dry eye
     Route: 047
     Dates: start: 202411
  2. TYRVAYA [Concomitant]
     Active Substance: VARENICLINE TARTRATE
     Indication: Product used for unknown indication
     Route: 065

REACTIONS (4)
  - Instillation site irritation [Recovered/Resolved]
  - Liquid product physical issue [Unknown]
  - Therapy interrupted [Unknown]
  - Product quality issue [Unknown]

NARRATIVE: CASE EVENT DATE: 20241101
